FAERS Safety Report 20119238 (Version 2)
Quarter: 2022Q1

REPORT INFORMATION
  Report Type: Spontaneous
  Country: US (occurrence: US)
  Receive Date: 20211126
  Receipt Date: 20220322
  Transmission Date: 20220424
  Serious: Yes (Hospitalization, Other)
  Sender: FDA-Public Use
  Company Number: US-GILEAD-2021-0557168

PATIENT
  Age: 60 Year
  Sex: Male
  Weight: 95.254 kg

DRUGS (8)
  1. TRUVADA [Suspect]
     Active Substance: EMTRICITABINE\TENOFOVIR DISOPROXIL FUMARATE
     Indication: HIV infection
     Dosage: UNK
     Route: 048
     Dates: start: 2012, end: 201612
  2. DESCOVY [Concomitant]
     Active Substance: EMTRICITABINE\TENOFOVIR ALAFENAMIDE FUMARATE
     Indication: HIV infection
  3. TIVICAY [Concomitant]
     Active Substance: DOLUTEGRAVIR SODIUM
     Indication: HIV infection
  4. AMLODIPINE [Concomitant]
     Active Substance: AMLODIPINE BESYLATE
     Indication: Hypertension
  5. CARVEDILOL [Concomitant]
     Active Substance: CARVEDILOL
     Indication: Hypertension
  6. FUROSEMIDE [Concomitant]
     Active Substance: FUROSEMIDE
     Indication: Hypertension
  7. IRBESARTAN [Concomitant]
     Active Substance: IRBESARTAN
     Indication: Hypertension
  8. PROMACTA [Concomitant]
     Active Substance: ELTROMBOPAG OLAMINE
     Indication: Thrombocytopenia

REACTIONS (9)
  - Chronic kidney disease [Not Recovered/Not Resolved]
  - Renal failure [Not Recovered/Not Resolved]
  - Emotional distress [Not Recovered/Not Resolved]
  - Anhedonia [Not Recovered/Not Resolved]
  - Loss of personal independence in daily activities [Not Recovered/Not Resolved]
  - Fatigue [Not Recovered/Not Resolved]
  - Anxiety [Not Recovered/Not Resolved]
  - Pain [Not Recovered/Not Resolved]
  - Asthenia [Not Recovered/Not Resolved]

NARRATIVE: CASE EVENT DATE: 20150401
